FAERS Safety Report 5866489-6 (Version None)
Quarter: 2008Q3

REPORT INFORMATION
  Report Type: 
  Country: None (occurrence: None)
  Receive Date: 20080902
  Receipt Date: 20080902
  Transmission Date: 20090109
  Serious: Yes (Hospitalization)
  Sender: FDA-Public Use
  Company Number: PHEH1997US00228

PATIENT
  Sex: Male
  Weight: 93 kg

DRUGS (11)
  1. NEORAL [Suspect]
     Route: 048
     Dates: start: 19951128
  2. PREDNISONE TAB [Concomitant]
  3. IMURAN [Concomitant]
  4. ASPIRIN TAB [Concomitant]
  5. MYCELEX [Concomitant]
  6. OSCAL D (CALCIUM CARBONATE) [Concomitant]
  7. PEPCID [Concomitant]
  8. BACTRIM DS [Concomitant]
  9. VASOTEC [Concomitant]
  10. MAGNESIUM OXIDE [Concomitant]
  11. PRAVACHOL [Concomitant]

REACTIONS (1)
  - SURGERY [None]
